FAERS Safety Report 10443970 (Version 1)
Quarter: 2014Q3

REPORT INFORMATION
  Report Type: Spontaneous
  Country: US (occurrence: US)
  Receive Date: 20140910
  Receipt Date: 20140910
  Transmission Date: 20150326
  Serious: No
  Sender: FDA-Public Use
  Company Number: US-TARO-2014P1003073

PATIENT
  Age: 82 Year
  Sex: Male
  Weight: 68.04 kg

DRUGS (6)
  1. WARFARIN SODIUM TABLETS USP 2MG [Suspect]
     Active Substance: WARFARIN SODIUM
     Indication: ATRIAL FIBRILLATION
     Route: 048
     Dates: start: 201402
  2. WARFARIN SODIUM TABLETS USP 2MG [Suspect]
     Active Substance: WARFARIN SODIUM
     Route: 048
     Dates: start: 201402
  3. ASPIRIN. [Concomitant]
     Active Substance: ASPIRIN
  4. UNSPECIFIED DIABETES MEDICATIONS [Concomitant]
  5. DIOVAN [Concomitant]
     Active Substance: VALSARTAN
  6. UNSPECIFIED MEDICATION FOR NEUROPATHY OF FEET [Concomitant]

REACTIONS (4)
  - Insomnia [Not Recovered/Not Resolved]
  - Depression [Not Recovered/Not Resolved]
  - Agitation [Not Recovered/Not Resolved]
  - Major depression [Not Recovered/Not Resolved]

NARRATIVE: CASE EVENT DATE: 201403
